FAERS Safety Report 8326040-8 (Version None)
Quarter: 2012Q2

REPORT INFORMATION
  Report Type: 
  Country: None (occurrence: None)
  Receive Date: 20120501
  Receipt Date: 20120426
  Transmission Date: 20120825
  Serious: Yes (Death, Hospitalization)
  Sender: FDA-Public Use
  Company Number: US-GLAXOSMITHKLINE-A0759920A

PATIENT
  Age: 63 Year
  Sex: Male
  Weight: 90.9 kg

DRUGS (3)
  1. ACTOS [Concomitant]
  2. ASPIRIN [Concomitant]
  3. AVANDIA [Suspect]
     Indication: TYPE 2 DIABETES MELLITUS
     Dosage: 4MG PER DAY
     Route: 048
     Dates: start: 20000329, end: 20050811

REACTIONS (8)
  - DYSPNOEA [None]
  - DEATH [None]
  - CARDIAC FAILURE [None]
  - OEDEMA PERIPHERAL [None]
  - CARDIAC FAILURE CONGESTIVE [None]
  - CARDIAC DISORDER [None]
  - OEDEMA [None]
  - FATIGUE [None]
